FAERS Safety Report 8384338-1 (Version None)
Quarter: 2012Q2

REPORT INFORMATION
  Report Type: 
  Country: None (occurrence: None)
  Receive Date: 20120524
  Receipt Date: 20120514
  Transmission Date: 20120825
  Serious: No
  Sender: FDA-Public Use
  Company Number: US-ELI_LILLY_AND_COMPANY-US201204004415

PATIENT
  Sex: Female
  Weight: 72 kg

DRUGS (6)
  1. FORTEO [Suspect]
     Indication: OSTEOPOROSIS POSTMENOPAUSAL
     Dosage: UNK, UNKNOWN
     Route: 058
  2. ISMO [Concomitant]
     Dosage: UNK, UNKNOWN
     Route: 065
  3. ACYCLOVIR [Concomitant]
     Dosage: UNK, UNKNOWN
     Route: 065
  4. TOPROL-XL [Concomitant]
     Dosage: UNK, UNKNOWN
     Route: 065
  5. SINGULAIR [Concomitant]
     Dosage: UNK, UNKNOWN
     Route: 065
  6. PLAVIX [Concomitant]
     Dosage: UNK, UNKNOWN
     Route: 065

REACTIONS (6)
  - INJECTION SITE ERYTHEMA [None]
  - ORTHOSTATIC HYPOTENSION [None]
  - FALL [None]
  - MUSCULOSKELETAL CHEST PAIN [None]
  - SKELETAL INJURY [None]
  - CONTUSION [None]
